FAERS Safety Report 6486349-X (Version None)
Quarter: 2009Q4

REPORT INFORMATION
  Report Type: 
  Country: None (occurrence: None)
  Receive Date: 20091209
  Receipt Date: 20090730
  Transmission Date: 20100525
  Serious: No
  Sender: FDA-Public Use
  Company Number: US-AMGEN-KDL358032

PATIENT
  Sex: Female

DRUGS (2)
  1. ENBREL [Suspect]
     Indication: RHEUMATOID ARTHRITIS
     Route: 058
     Dates: start: 20080418
  2. METHOTREXATE [Concomitant]

REACTIONS (5)
  - BACK PAIN [None]
  - FEELING OF BODY TEMPERATURE CHANGE [None]
  - PARANASAL SINUS HYPERSECRETION [None]
  - RHEUMATOID ARTHRITIS [None]
  - THROAT IRRITATION [None]
